FAERS Safety Report 14686064 (Version 2)
Quarter: 2018Q2

REPORT INFORMATION
  Report Type: Spontaneous
  Country: JP (occurrence: JP)
  Receive Date: 20180327
  Receipt Date: 20180521
  Transmission Date: 20180711
  Serious: Yes (Other)
  Sender: FDA-Public Use
  Company Number: JP-009507513-1710JPN003175J

PATIENT

DRUGS (2)
  1. TEMODAL [Suspect]
     Active Substance: TEMOZOLOMIDE
     Indication: MALIGNANT GLIOMA
     Dosage: UNK
     Route: 048
  2. AVASTIN [Concomitant]
     Active Substance: BEVACIZUMAB
     Indication: MALIGNANT GLIOMA
     Dosage: UNK
     Route: 051

REACTIONS (5)
  - Proteinuria [Unknown]
  - Hypertension [Unknown]
  - Lymphocyte count decreased [Unknown]
  - Platelet count decreased [Unknown]
  - Haemorrhage intracranial [Unknown]
